FAERS Safety Report 9877474 (Version 1)
Quarter: 2014Q1

REPORT INFORMATION
  Report Type: Other
  Country: US (occurrence: US)
  Receive Date: 20140206
  Receipt Date: 20140206
  Transmission Date: 20141002
  Serious: Yes (Hospitalization, Other)
  Sender: FDA-Public Use
  Company Number: US-ACORDA-ACO_38800_2013

PATIENT
  Age: 47 Year
  Sex: Female
  Weight: 90.25 kg

DRUGS (11)
  1. AMPYRA [Suspect]
     Indication: MULTIPLE SCLEROSIS
     Dosage: 10 MG, Q 12 HRS
     Route: 048
     Dates: start: 20130903
  2. AMPYRA [Suspect]
     Dosage: 10 MG, QD
     Route: 048
     Dates: start: 2013
  3. CELEBREX [Concomitant]
     Indication: ARTHRITIS
     Dosage: 200 MG, UNK
  4. LEXAPRO [Concomitant]
     Indication: DEPRESSION
     Dosage: 10 MG, UNK
  5. LYRICA [Concomitant]
     Indication: FIBROMYALGIA
     Dosage: 100 MG, TID
  6. PURE AIR INHALER [Concomitant]
     Indication: BRONCHITIS CHRONIC
     Dosage: UNK
  7. ADVAIR [Concomitant]
     Indication: BRONCHITIS CHRONIC
     Dosage: UNK
  8. CARISOPRODOL [Concomitant]
     Indication: MUSCLE SPASMS
     Dosage: 350 MG, Q 6HRS
  9. CEPHALEXIN [Concomitant]
     Indication: URINARY TRACT INFECTION
     Dosage: 500 MG, UNK
     Dates: start: 20130827
  10. HYDROMORPHONE HCL [Concomitant]
     Indication: PAIN
     Dosage: UNK
  11. NICOTINE BITARTRATE [Concomitant]
     Indication: SMOKING CESSATION THERAPY
     Dosage: 21 MG, UNK

REACTIONS (6)
  - Pain [Unknown]
  - Abnormal dreams [Unknown]
  - Sleep talking [Unknown]
  - Middle insomnia [Unknown]
  - Drug dose omission [Unknown]
  - Inappropriate schedule of drug administration [Unknown]
